FAERS Safety Report 18637920 (Version 1)
Quarter: 2020Q4

REPORT INFORMATION
  Report Type: Spontaneous
  Country: US (occurrence: US)
  Receive Date: 20201218
  Receipt Date: 20201218
  Transmission Date: 20210114
  Serious: Yes (Hospitalization, Other)
  Sender: FDA-Public Use
  Company Number: US-BAUSCH-BL-2020-036831

PATIENT
  Age: 57 Year
  Sex: Female
  Weight: 84.37 kg

DRUGS (5)
  1. ATIVAN [Suspect]
     Active Substance: LORAZEPAM
     Indication: PANIC ATTACK
     Dosage: ONE TABLET ONCE DAILY AS NEEDED, BUT ALWAYS TAKE ONE AT NIGHT
     Route: 048
  2. ATIVAN [Suspect]
     Active Substance: LORAZEPAM
     Indication: ANXIETY
     Dosage: ONE TABLET ONCE DAILY AS NEEDED, BUT ALWAYS TAKE ONE AT NIGHT
     Route: 048
     Dates: start: 2006
  3. ATIVAN [Suspect]
     Active Substance: LORAZEPAM
     Indication: INSOMNIA
  4. EFFEXOR XR [Suspect]
     Active Substance: VENLAFAXINE HYDROCHLORIDE
     Indication: ATTENTION DEFICIT HYPERACTIVITY DISORDER
     Dosage: EVERY MORNING
     Route: 048
  5. EFFEXOR XR [Suspect]
     Active Substance: VENLAFAXINE HYDROCHLORIDE
     Indication: DEPRESSION
     Dosage: EVERY MORNING
     Route: 048
     Dates: start: 2006

REACTIONS (3)
  - Liver disorder [Unknown]
  - Dementia [Unknown]
  - Tumour excision [Recovered/Resolved with Sequelae]

NARRATIVE: CASE EVENT DATE: 20151105
